FAERS Safety Report 6663340-1 (Version None)
Quarter: 2010Q1

REPORT INFORMATION
  Report Type: 
  Country: None (occurrence: None)
  Receive Date: 20100331
  Receipt Date: 20100331
  Transmission Date: 20100710
  Serious: Yes (Life-Threatening, Disabling)
  Sender: FDA-Public Use
  Company Number: None

PATIENT
  Age: 45 Year
  Sex: Female
  Weight: 56.6996 kg

DRUGS (2)
  1. SEROQUEL [Suspect]
     Indication: BIPOLAR DISORDER
     Dosage: 200 MG DAILY PO
     Route: 048
     Dates: start: 20020901, end: 20040915
  2. SEROQUEL [Suspect]
     Indication: BIPOLAR DISORDER
     Dosage: 200 MG DAILY PO
     Route: 048
     Dates: start: 20091101, end: 20100330

REACTIONS (29)
  - ABDOMINAL DISTENSION [None]
  - AMBLYOPIA [None]
  - ANXIETY [None]
  - APPARENT LIFE THREATENING EVENT [None]
  - ARTHRALGIA [None]
  - CONSTIPATION [None]
  - COORDINATION ABNORMAL [None]
  - DISCOMFORT [None]
  - DIZZINESS [None]
  - DRY THROAT [None]
  - DYSPNOEA [None]
  - FLATULENCE [None]
  - FUNGAL INFECTION [None]
  - HEART RATE INCREASED [None]
  - HERPES SIMPLEX [None]
  - MUSCLE SPASMS [None]
  - NAUSEA [None]
  - OFF LABEL USE [None]
  - ORAL HERPES [None]
  - OROPHARYNGEAL PAIN [None]
  - PANIC ATTACK [None]
  - RHINITIS [None]
  - SEDATION [None]
  - SINUSITIS [None]
  - SPEECH DISORDER [None]
  - STAPHYLOCOCCAL SKIN INFECTION [None]
  - TONGUE DISORDER [None]
  - VISION BLURRED [None]
  - WEIGHT INCREASED [None]
